FAERS Safety Report 24551159 (Version 1)
Quarter: 2024Q4

REPORT INFORMATION
  Report Type: Spontaneous
  Country: AT (occurrence: AT)
  Receive Date: 20241025
  Receipt Date: 20241025
  Transmission Date: 20250115
  Serious: Yes (Other)
  Sender: TEVA
  Company Number: AT-EMA-DD-20241007-7482699-071053

PATIENT
  Age: 78 Year
  Sex: Male

DRUGS (3)
  1. PACLITAXEL [Suspect]
     Active Substance: PACLITAXEL
     Indication: Squamous cell carcinoma of lung
     Dosage: TIME INTERVAL: CYCLICAL: UNK, CYCLIC
     Route: 065
  2. KEYTRUDA [Suspect]
     Active Substance: PEMBROLIZUMAB
     Indication: Squamous cell carcinoma of lung
     Dosage: TIME INTERVAL: CYCLICAL: UNK, CYCLIC
     Route: 065
  3. CARBOPLATIN [Suspect]
     Active Substance: CARBOPLATIN
     Indication: Squamous cell carcinoma of lung
     Dosage: TIME INTERVAL: CYCLICAL: UNK, CYCLIC
     Route: 065

REACTIONS (1)
  - Hyperthyroidism [Unknown]
